FAERS Safety Report 5477101-2 (Version None)
Quarter: 2007Q3

REPORT INFORMATION
  Report Type: 
  Country: None (occurrence: None)
  Receive Date: 20070831
  Receipt Date: 20070726
  Transmission Date: 20080115
  Serious: Yes (Death)
  Sender: FDA-Public Use
  Company Number: US-JNJFOC-20070601227

PATIENT
  Age: 71 Year
  Sex: Female
  Weight: 76.6579 kg

DRUGS (7)
  1. DACOGEN [Suspect]
     Indication: MYELODYSPLASTIC SYNDROME
     Dosage: 29 MG, INTRAVENOUS
     Route: 042
     Dates: start: 20070205, end: 20070209
  2. DACOGEN [Suspect]
     Indication: MYELODYSPLASTIC SYNDROME
     Dosage: 29 MG, INTRAVENOUS
     Route: 042
     Dates: start: 20070305, end: 20070309
  3. DACOGEN [Suspect]
     Indication: MYELODYSPLASTIC SYNDROME
     Dosage: 29 MG, INTRAVENOUS
     Route: 042
     Dates: start: 20070402, end: 20070406
  4. DACOGEN [Suspect]
     Indication: MYELODYSPLASTIC SYNDROME
     Dosage: 29 MG, INTRAVENOUS
     Route: 042
     Dates: start: 20070430, end: 20070504
  5. ALOXI (ANTIEMETICS AND ANTINAUSEANTS) [Concomitant]
  6. ZOFRAN [Concomitant]
  7. DEXADOR (ALL OTHER NON-THERAPEUTIC PRODUCTS) [Concomitant]

REACTIONS (2)
  - LEUKOCYTOCLASTIC VASCULITIS [None]
  - MYELODYSPLASTIC SYNDROME [None]
